FAERS Safety Report 12633004 (Version 2)
Quarter: 2016Q3

REPORT INFORMATION
  Report Type: Spontaneous
  Country: US (occurrence: US)
  Receive Date: 20160808
  Receipt Date: 20160808
  Transmission Date: 20161109
  Serious: No
  Sender: FDA-Public Use
  Company Number: US-BEH-2016058059

PATIENT
  Age: 68 Year
  Sex: Female
  Weight: 74 kg

DRUGS (21)
  1. CELEBREX [Concomitant]
     Active Substance: CELECOXIB
  2. CLONAZEPAM. [Concomitant]
     Active Substance: CLONAZEPAM
  3. ESTRADIOL. [Concomitant]
     Active Substance: ESTRADIOL
  4. HIZENTRA [Suspect]
     Active Substance: HUMAN IMMUNOGLOBULIN G
  5. PROMETRIUM [Concomitant]
     Active Substance: PROGESTERONE
  6. NORTRIPTYLINE [Concomitant]
     Active Substance: NORTRIPTYLINE
  7. HIZENTRA [Suspect]
     Active Substance: HUMAN IMMUNOGLOBULIN G
     Route: 058
  8. CRESTOR [Concomitant]
     Active Substance: ROSUVASTATIN CALCIUM
  9. TIZANIDINE. [Concomitant]
     Active Substance: TIZANIDINE
  10. XYZAL [Concomitant]
     Active Substance: LEVOCETIRIZINE DIHYDROCHLORIDE
  11. BETHANECHOL [Concomitant]
     Active Substance: BETHANECHOL
  12. CYMBALTA [Concomitant]
     Active Substance: DULOXETINE HYDROCHLORIDE
  13. PROPANOL [Concomitant]
     Active Substance: PROPRANOLOL HYDROCHLORIDE
  14. LIBRAX [Concomitant]
     Active Substance: CHLORDIAZEPOXIDE HYDROCHLORIDE\CLIDINIUM BROMIDE
  15. SYNTHROID [Concomitant]
     Active Substance: LEVOTHYROXINE SODIUM
  16. LEXAPRO [Concomitant]
     Active Substance: ESCITALOPRAM OXALATE
  17. ACETAMINOPHEN. [Concomitant]
     Active Substance: ACETAMINOPHEN
  18. HIZENTRA [Suspect]
     Active Substance: HUMAN IMMUNOGLOBULIN G
     Indication: IMMUNODEFICIENCY COMMON VARIABLE
     Dates: start: 20120313
  19. SINGULAIR [Concomitant]
     Active Substance: MONTELUKAST SODIUM
  20. EPIPEN [Concomitant]
     Active Substance: EPINEPHRINE
  21. ZYRTEC [Concomitant]
     Active Substance: CETIRIZINE HYDROCHLORIDE

REACTIONS (4)
  - Headache [Unknown]
  - Sinusitis [Recovering/Resolving]
  - Increased appetite [Unknown]
  - Constipation [Unknown]

NARRATIVE: CASE EVENT DATE: 20160112
